FAERS Safety Report 19239434 (Version 1)
Quarter: 2021Q2

REPORT INFORMATION
  Report Type: Spontaneous
  Country: US (occurrence: US)
  Receive Date: 20210510
  Receipt Date: 20210510
  Transmission Date: 20210717
  Serious: Yes (Hospitalization)
  Sender: FDA-Public Use
  Company Number: US-ELI_LILLY_AND_COMPANY-US202105002130

PATIENT
  Age: 80 Year
  Sex: Male

DRUGS (1)
  1. BAMLANIVIMAB. [Suspect]
     Active Substance: BAMLANIVIMAB
     Indication: COVID-19
     Dosage: 700 MG, SINGLE
     Route: 042
     Dates: start: 20210123, end: 20210123

REACTIONS (10)
  - Oxygen saturation decreased [Recovered/Resolved]
  - Dyspnoea [Recovered/Resolved]
  - Oxygen saturation decreased [Recovered/Resolved]
  - Dyspnoea [Recovered/Resolved]
  - Asthenia [Recovering/Resolving]
  - Arthralgia [Recovered/Resolved]
  - Platelet count increased [Recovered/Resolved]
  - Limb discomfort [Recovered/Resolved]
  - Mobility decreased [Recovering/Resolving]
  - Incontinence [Recovered/Resolved]

NARRATIVE: CASE EVENT DATE: 20210123
